FAERS Safety Report 12329806 (Version 1)
Quarter: 2016Q2

REPORT INFORMATION
  Report Type: Report from Study
  Country: BR (occurrence: BR)
  Receive Date: 20160503
  Receipt Date: 20160503
  Transmission Date: 20160815
  Serious: No
  Sender: FDA-Public Use
  Company Number: PHHY2015BR165031

PATIENT
  Sex: Female
  Weight: 76 kg

DRUGS (2)
  1. TASIGNA [Suspect]
     Active Substance: NILOTINIB
     Indication: CHRONIC MYELOID LEUKAEMIA
     Dosage: 2 DF, Q12H (2 IN THE MORNING AND 2 AT NIGHT)
     Route: 048
     Dates: start: 20151110
  2. TASIGNA [Suspect]
     Active Substance: NILOTINIB
     Dosage: 2 DF , QD
     Route: 048

REACTIONS (9)
  - Malaise [Recovering/Resolving]
  - Decreased appetite [Recovered/Resolved]
  - Blood cholesterol increased [Unknown]
  - Abdominal distension [Recovering/Resolving]
  - Nausea [Recovered/Resolved]
  - Constipation [Recovered/Resolved]
  - Blood glucose increased [Unknown]
  - Headache [Recovered/Resolved]
  - Dyspepsia [Recovered/Resolved]
